FAERS Safety Report 7830810-X (Version None)
Quarter: 2011Q4

REPORT INFORMATION
  Report Type: 
  Country: None (occurrence: None)
  Receive Date: 20111021
  Receipt Date: 20110804
  Transmission Date: 20120403
  Serious: Yes (Hospitalization)
  Sender: FDA-Public Use
  Company Number: JP-GLAXOSMITHKLINE-B0737800A

PATIENT
  Sex: Female
  Weight: 40 kg

DRUGS (7)
  1. RISPERDAL [Concomitant]
     Indication: HALLUCINATION
     Dosage: 9MG PER DAY
     Route: 048
     Dates: start: 20090101
  2. AKINETON [Concomitant]
     Indication: TREMOR
     Dosage: 4MG PER DAY
     Route: 048
     Dates: start: 20090101
  3. LAC B [Concomitant]
     Indication: CONSTIPATION
     Dosage: 3G PER DAY
     Route: 048
     Dates: start: 20100501
  4. LAMICTAL [Suspect]
     Indication: EPILEPSY
     Dosage: 75MG PER DAY
     Route: 048
     Dates: start: 20110716, end: 20110729
  5. CLONAZEPAM [Concomitant]
     Indication: EPILEPSY
     Dosage: 3MG PER DAY
     Route: 048
     Dates: start: 20090101
  6. DIAZEPAM [Concomitant]
     Route: 048
  7. DIAZEPAM [Concomitant]
     Indication: ANXIETY
     Dosage: 6MG PER DAY
     Route: 048
     Dates: start: 20090101

REACTIONS (9)
  - LIVER DISORDER [None]
  - DRUG RASH WITH EOSINOPHILIA AND SYSTEMIC SYMPTOMS [None]
  - PYREXIA [None]
  - NAUSEA [None]
  - HEPATIC ENZYME INCREASED [None]
  - RASH [None]
  - DECREASED APPETITE [None]
  - FAECES PALE [None]
  - DRUG ERUPTION [None]
